FAERS Safety Report 7149444-8 (Version None)
Quarter: 2010Q4

REPORT INFORMATION
  Report Type: 
  Country: None (occurrence: None)
  Receive Date: 20101209
  Receipt Date: 20101117
  Transmission Date: 20110411
  Serious: No
  Sender: FDA-Public Use
  Company Number: US-PFIZER INC-2010153563

PATIENT
  Age: 31 Year
  Sex: Female
  Weight: 85.714 kg

DRUGS (1)
  1. ADVIL LIQUI-GELS [Suspect]
     Indication: HEADACHE
     Dosage: 2 DF, 2X/DAY
     Route: 048
     Dates: start: 20101028

REACTIONS (1)
  - DRUG INEFFECTIVE [None]
